FAERS Safety Report 5489482-4 (Version None)
Quarter: 2007Q4

REPORT INFORMATION
  Report Type: 
  Country: None (occurrence: None)
  Receive Date: 20071018
  Receipt Date: 20071010
  Transmission Date: 20080405
  Serious: Yes (Death, Life-Threatening, Hospitalization)
  Sender: FDA-Public Use
  Company Number: DE-GENENTECH-211524

PATIENT
  Sex: Female

DRUGS (5)
  1. RITUXIMAB [Suspect]
     Indication: DIFFUSE LARGE B-CELL LYMPHOMA
     Dosage: 375 MG/M2, UNK
     Route: 042
     Dates: start: 20040312
  2. CISPLATIN [Suspect]
     Indication: DIFFUSE LARGE B-CELL LYMPHOMA
     Dosage: 100 MG/M2, UNK
     Route: 042
     Dates: start: 20040512
  3. CYTOSINE ARABINOSIDE HCL [Suspect]
     Indication: DIFFUSE LARGE B-CELL LYMPHOMA
     Dosage: 4000 MG/M2, UNK
     Route: 042
     Dates: start: 20040712
  4. DEXAMETHASONE 0.5MG TAB [Suspect]
     Indication: DIFFUSE LARGE B-CELL LYMPHOMA
     Dosage: 40 MG, UNK
     Dates: start: 20040512
  5. LENOGRASTIM [Suspect]
     Indication: DRUG USE FOR UNKNOWN INDICATION

REACTIONS (2)
  - BACTERIAL SEPSIS [None]
  - NEUTROPENIA [None]
